FAERS Safety Report 26075105 (Version 1)
Quarter: 2025Q4

REPORT INFORMATION
  Report Type: Spontaneous
  Country: TH (occurrence: TH)
  Receive Date: 20251121
  Receipt Date: 20251121
  Transmission Date: 20260118
  Serious: Yes (Other)
  Sender: NOVARTIS
  Company Number: TH-002147023-NVSC2025TH175635

PATIENT
  Age: 54 Year
  Sex: Female

DRUGS (2)
  1. RIBOCICLIB [Suspect]
     Active Substance: RIBOCICLIB
     Indication: Invasive ductal breast carcinoma
     Dosage: UNK
     Route: 065
     Dates: start: 20200527
  2. LETROZOLE [Concomitant]
     Active Substance: LETROZOLE
     Indication: Product used for unknown indication
     Dosage: UNK
     Route: 065
     Dates: start: 20200527

REACTIONS (14)
  - Invasive ductal breast carcinoma [Unknown]
  - Malignant neoplasm progression [Unknown]
  - Metastases to lymph nodes [Unknown]
  - Metastases to bone [Unknown]
  - Meningioma [Unknown]
  - Headache [Unknown]
  - Hemiparaesthesia [Unknown]
  - Cardiomegaly [Unknown]
  - Kidney small [Unknown]
  - Osteopenia [Unknown]
  - Pancreatic cyst [Unknown]
  - Dizziness [Unknown]
  - Pain [Unknown]
  - Renal cyst [Unknown]

NARRATIVE: CASE EVENT DATE: 20220221
